FAERS Safety Report 10273695 (Version 4)
Quarter: 2014Q3

REPORT INFORMATION
  Report Type: Report from Study
  Country: CA (occurrence: CA)
  Receive Date: 20140702
  Receipt Date: 20140714
  Transmission Date: 20150326
  Serious: Yes (Hospitalization, Other)
  Sender: FDA-Public Use
  Company Number: CA-ABBVIE-13P-028-1144414-00

PATIENT
  Sex: Female

DRUGS (1)
  1. HUMIRA [Suspect]
     Active Substance: ADALIMUMAB
     Indication: CROHN^S DISEASE
     Route: 058
     Dates: start: 20090117, end: 20140619

REACTIONS (5)
  - Eye swelling [Recovered/Resolved]
  - Arthropathy [Not Recovered/Not Resolved]
  - Procedural pain [Not Recovered/Not Resolved]
  - Aphthous stomatitis [Not Recovered/Not Resolved]
  - Eye pruritus [Recovered/Resolved]

NARRATIVE: CASE EVENT DATE: 2012
